FAERS Safety Report 16236793 (Version 1)
Quarter: 2019Q2

REPORT INFORMATION
  Report Type: Spontaneous
  Country: US (occurrence: US)
  Receive Date: 20190425
  Receipt Date: 20190425
  Transmission Date: 20190711
  Serious: No
  Sender: FDA-Public Use
  Company Number: US-ASTRAZENECA-2019SE50250

PATIENT
  Sex: Male

DRUGS (1)
  1. BYDUREON BCISE [Suspect]
     Active Substance: EXENATIDE
     Route: 058

REACTIONS (7)
  - Hypoacusis [Unknown]
  - Rhinorrhoea [Unknown]
  - Device leakage [Unknown]
  - Circumstance or information capable of leading to medication error [Unknown]
  - Pyrexia [Unknown]
  - Asthma [Unknown]
  - Injection site haemorrhage [Recovered/Resolved]
